FAERS Safety Report 19713023 (Version 1)
Quarter: 2021Q3

REPORT INFORMATION
  Report Type: Spontaneous
  Country: US (occurrence: US)
  Receive Date: 20210817
  Receipt Date: 20210817
  Transmission Date: 20211014
  Serious: Yes (Hospitalization)
  Sender: FDA-Public Use
  Company Number: None

PATIENT
  Age: 45 Year
  Sex: Female

DRUGS (1)
  1. REGEN?COV [Suspect]
     Active Substance: CASIRIVIMAB\IMDEVIMAB
     Indication: COVID-19
     Dosage: ?          OTHER FREQUENCY:SINGLE TIME;?
     Route: 041

REACTIONS (5)
  - Musculoskeletal disorder [None]
  - Infusion related reaction [None]
  - Dizziness [None]
  - Tachycardia [None]
  - Blood pressure systolic increased [None]

NARRATIVE: CASE EVENT DATE: 20210815
